FAERS Safety Report 5001815-1 (Version None)
Quarter: 2006Q2

REPORT INFORMATION
  Report Type: 
  Country: None (occurrence: None)
  Receive Date: 20060515
  Receipt Date: 20060510
  Transmission Date: 20061013
  Serious: Yes (Hospitalization)
  Sender: FDA-Public Use
  Company Number: US-GLAXOSMITHKLINE-A0605065A

PATIENT
  Age: 64 Year
  Sex: Male
  Weight: 107.3 kg

DRUGS (7)
  1. IMITREX [Suspect]
     Indication: MIGRAINE
     Dosage: 6MG PER DAY
     Route: 058
     Dates: start: 20060401, end: 20060401
  2. IV PEPCID [Concomitant]
  3. MORPHINE [Concomitant]
  4. TEGRETOL [Concomitant]
     Dosage: 400MG TWICE PER DAY
  5. PHENERGAN HCL [Concomitant]
  6. UNKNOWN INTRAVENOUS FLUID [Concomitant]
  7. ZOFRAN [Concomitant]

REACTIONS (3)
  - ACIDOSIS [None]
  - ANAEMIA [None]
  - BLOOD SODIUM DECREASED [None]
